FAERS Safety Report 6550440-X (Version None)
Quarter: 2010Q1

REPORT INFORMATION
  Report Type: 
  Country: None (occurrence: None)
  Receive Date: 20100125
  Receipt Date: 20100112
  Transmission Date: 20100710
  Serious: Yes (Other)
  Sender: FDA-Public Use
  Company Number: US-BRACCO-003907

PATIENT
  Sex: Male

DRUGS (23)
  1. PROHANCE [Suspect]
     Indication: NUCLEAR MAGNETIC RESONANCE IMAGING BRAIN
     Route: 065
     Dates: start: 20080425, end: 20080425
  2. OMNISCAN [Suspect]
     Indication: NUCLEAR MAGNETIC RESONANCE IMAGING
     Route: 065
     Dates: start: 20040915, end: 20040915
  3. OMNISCAN [Suspect]
     Indication: NUCLEAR MAGNETIC RESONANCE IMAGING BRAIN
     Route: 065
     Dates: start: 20041202, end: 20041202
  4. OMNISCAN [Suspect]
     Route: 065
     Dates: start: 20050725, end: 20050725
  5. OMNISCAN [Suspect]
     Route: 065
     Dates: start: 20060321, end: 20060321
  6. OMNISCAN [Suspect]
     Route: 065
     Dates: start: 20060824, end: 20060824
  7. OMNISCAN [Suspect]
     Route: 065
     Dates: start: 20061205, end: 20061205
  8. CALCITRIOL [Concomitant]
  9. PHOSLO [Concomitant]
  10. ZOLOFT [Concomitant]
  11. GABAPENTIN [Concomitant]
  12. ALTACE [Concomitant]
  13. RENAGEL [Concomitant]
  14. FENTANYL [Concomitant]
  15. PEPCID [Concomitant]
  16. MEGESTROL ACETATE [Concomitant]
  17. PREDNISONE [Concomitant]
  18. SENSIPAR [Concomitant]
  19. MS CONTIN [Concomitant]
  20. OXYCODONE [Concomitant]
  21. HEPARIN [Concomitant]
  22. PLAQUENIL [Concomitant]
  23. CARBIDOPA [Concomitant]

REACTIONS (1)
  - NEPHROGENIC SYSTEMIC FIBROSIS [None]
